FAERS Safety Report 5857190-3 (Version None)
Quarter: 2008Q3

REPORT INFORMATION
  Report Type: 
  Country: None (occurrence: None)
  Receive Date: 20080825
  Receipt Date: 20080821
  Transmission Date: 20090109
  Serious: Yes (Death, Hospitalization, Other)
  Sender: FDA-Public Use
  Company Number: MX-ABBOTT-08P-107-0461766-00

PATIENT
  Sex: Male
  Weight: 74 kg

DRUGS (4)
  1. KALETRA [Suspect]
     Indication: HIV INFECTION
     Dosage: 399.99/99.99 MG, 3 CAPSULES BID
     Dates: start: 20060221, end: 20070701
  2. HYOSCINE HBR HYT [Concomitant]
     Indication: DRUG USE FOR UNKNOWN INDICATION
     Dates: start: 20070618, end: 20070701
  3. DICLOFENAC DIETHYLAMINE [Concomitant]
     Indication: DRUG USE FOR UNKNOWN INDICATION
     Route: 048
     Dates: start: 20070618, end: 20070701
  4. MULTI-VITAMINS [Concomitant]
     Indication: DRUG USE FOR UNKNOWN INDICATION
     Dates: start: 20070618, end: 20070701

REACTIONS (4)
  - ACUTE HEPATIC FAILURE [None]
  - CHOLURIA [None]
  - HEPATITIS B [None]
  - HEPATITIS FULMINANT [None]
